FAERS Safety Report 7279346-8 (Version None)
Quarter: 2011Q1

REPORT INFORMATION
  Report Type: 
  Country: None (occurrence: None)
  Receive Date: 20110207
  Receipt Date: 20110131
  Transmission Date: 20110831
  Serious: Yes (Hospitalization)
  Sender: FDA-Public Use
  Company Number: IE-AMGEN-IRLSP2011005842

PATIENT
  Sex: Female

DRUGS (4)
  1. ARANESP [Suspect]
     Indication: RENAL FAILURE CHRONIC
     Dosage: 40 A?G, 2 TIMES/WK
     Route: 058
     Dates: start: 20090604
  2. CARDURA [Concomitant]
  3. ASPIRIN [Concomitant]
     Dosage: UNK
  4. ONE ALPHA [Concomitant]

REACTIONS (2)
  - BLOOD COUNT ABNORMAL [None]
  - LOWER RESPIRATORY TRACT INFECTION [None]
